FAERS Safety Report 5264627-X (Version None)
Quarter: 2007Q1

REPORT INFORMATION
  Report Type: 
  Country: None (occurrence: None)
  Receive Date: 20061122
  Receipt Date: 20060228
  Transmission Date: 20070707
  Serious: Yes (Death)
  Sender: FDA-Public Use
  Company Number: 2006MP000233

PATIENT
  Age: 60 Year
  Sex: Female
  Weight: 109.7705 kg

DRUGS (18)
  1. GLIADEL [Suspect]
     Indication: GLIOBLASTOMA MULTIFORME
     Dosage: 53.9 MG;X1;ICER
     Route: 018
     Dates: start: 20050721, end: 20050721
  2. TEMOZOLOMIDE [Suspect]
     Indication: GLIOBLASTOMA MULTIFORME
     Dosage: 440 MG;QD;PO
     Route: 048
     Dates: start: 20050725, end: 20050729
  3. TEMOZOLOMIDE [Suspect]
     Indication: GLIOBLASTOMA MULTIFORME
     Dosage: 165 MG;QD;PO
     Route: 048
     Dates: start: 20050822, end: 20051006
  4. TEMOZOLOMIDE [Suspect]
     Indication: GLIOBLASTOMA MULTIFORME
     Dosage: 440 MG;QD;PO
     Route: 048
     Dates: start: 20051024, end: 20051028
  5. TEMOZOLOMIDE [Suspect]
     Indication: GLIOBLASTOMA MULTIFORME
     Dosage: 440 MG;QD;PO
     Route: 048
     Dates: start: 20051121, end: 20051125
  6. TEMOZOLOMIDE [Suspect]
     Indication: GLIOBLASTOMA MULTIFORME
     Dosage: 440 MG;QD;PO
     Route: 048
     Dates: start: 20051219, end: 20051223
  7. TEMOZOLOMIDE [Suspect]
     Indication: GLIOBLASTOMA MULTIFORME
     Dosage: 440 MG;QD;PO
     Route: 048
     Dates: start: 20060123, end: 20060127
  8. DECADRON [Concomitant]
  9. BUMEX [Concomitant]
  10. POTASSIUM CHLORIDE [Concomitant]
  11. ACIPHEX [Concomitant]
  12. LIPITOR [Concomitant]
  13. ALLEGRA [Concomitant]
  14. ZOLOFT [Concomitant]
  15. SINGULAIR [Concomitant]
  16. AMBIEN [Concomitant]
  17. ZOFRAN [Concomitant]
  18. SENOKOT [Concomitant]

REACTIONS (2)
  - DEEP VEIN THROMBOSIS [None]
  - PULMONARY EMBOLISM [None]
